FAERS Safety Report 7599969-6 (Version None)
Quarter: 2011Q2

REPORT INFORMATION
  Report Type: 
  Country: None (occurrence: None)
  Receive Date: 20110629
  Receipt Date: 20110621
  Transmission Date: 20111010
  Serious: Yes (Death, Hospitalization)
  Sender: FDA-Public Use
  Company Number: ACO_23312_2011

PATIENT
  Age: 67 Year
  Sex: Male

DRUGS (2)
  1. AMPYRA [Suspect]
     Indication: PRODUCT USED FOR UNKNOWN INDICATION
     Dosage: 10 MG, BID
     Dates: start: 20100408, end: 20101201
  2. CEFEPIME [Suspect]
     Indication: WOUND INFECTION
     Dates: start: 20101001, end: 20101201

REACTIONS (5)
  - INFECTION [None]
  - WOUND INFECTION [None]
  - DRUG HYPERSENSITIVITY [None]
  - TUBULOINTERSTITIAL NEPHRITIS [None]
  - MENTAL STATUS CHANGES [None]
